FAERS Safety Report 24732394 (Version 2)
Quarter: 2025Q3

REPORT INFORMATION
  Report Type: Spontaneous
  Country: JP (occurrence: JP)
  Receive Date: 20241213
  Receipt Date: 20250828
  Transmission Date: 20251021
  Serious: Yes (Death, Hospitalization)
  Sender: EISAI
  Company Number: JP-Eisai-202205959_LEN-RCC_P_1

PATIENT
  Age: 47 Year
  Sex: Male

DRUGS (3)
  1. LENVATINIB [Suspect]
     Active Substance: LENVATINIB
     Indication: Renal cell carcinoma
     Route: 048
     Dates: start: 20220725, end: 20220802
  2. LENVATINIB [Suspect]
     Active Substance: LENVATINIB
     Route: 048
  3. PEMBROLIZUMAB [Suspect]
     Active Substance: PEMBROLIZUMAB
     Indication: Clear cell renal cell carcinoma
     Route: 041
     Dates: start: 20220725, end: 20220725

REACTIONS (3)
  - Cholecystitis acute [Recovering/Resolving]
  - Malignant neoplasm progression [Fatal]
  - Diarrhoea [Recovering/Resolving]

NARRATIVE: CASE EVENT DATE: 20220802
